FAERS Safety Report 7993140-1 (Version None)
Quarter: 2011Q4

REPORT INFORMATION
  Report Type: 
  Country: None (occurrence: None)
  Receive Date: 20111219
  Receipt Date: 20110119
  Transmission Date: 20120403
  Serious: No
  Sender: FDA-Public Use
  Company Number: US-ASTRAZENECA-2011SE03186

PATIENT
  Age: 70 Year
  Sex: Male
  Weight: 106.1 kg

DRUGS (4)
  1. ZETIA [Concomitant]
  2. CRESTOR [Suspect]
     Route: 048
     Dates: start: 20110119
  3. CRESTOR [Suspect]
     Route: 048
     Dates: start: 20101001, end: 20101201
  4. CRESTOR [Suspect]
     Route: 048
     Dates: start: 20101201, end: 20110119

REACTIONS (7)
  - MUSCULOSKELETAL PAIN [None]
  - MUSCLE SPASMS [None]
  - BACK PAIN [None]
  - NECK PAIN [None]
  - PAIN IN EXTREMITY [None]
  - BLOOD CREATINE PHOSPHOKINASE INCREASED [None]
  - HEADACHE [None]
